FAERS Safety Report 4954222-1 (Version None)
Quarter: 2006Q1

REPORT INFORMATION
  Report Type: 
  Country: None (occurrence: None)
  Receive Date: 20060327
  Receipt Date: 20060316
  Transmission Date: 20060701
  Serious: Yes (Other)
  Sender: FDA-Public Use
  Company Number: ES-BRISTOL-MYERS SQUIBB COMPANY-13316815

PATIENT
  Sex: Female

DRUGS (2)
  1. REYATAZ [Suspect]
     Indication: HIV INFECTION
     Route: 048
     Dates: start: 20060301, end: 20060301
  2. TRUVADA [Concomitant]
     Indication: HIV INFECTION
     Dates: start: 20060301

REACTIONS (3)
  - JAUNDICE [None]
  - MALAISE [None]
  - TRANSAMINASES INCREASED [None]
